FAERS Safety Report 7449453-5 (Version None)
Quarter: 2011Q2

REPORT INFORMATION
  Report Type: 
  Country: None (occurrence: None)
  Receive Date: 20110502
  Receipt Date: 20061009
  Transmission Date: 20111010
  Serious: No
  Sender: FDA-Public Use
  Company Number: 2006BI014568

PATIENT
  Sex: Female

DRUGS (2)
  1. TYSABRI [Suspect]
     Indication: MULTIPLE SCLEROSIS
     Route: 042
     Dates: start: 20050224, end: 20050224
  2. TYSABRI [Suspect]
     Route: 042
     Dates: start: 20061024, end: 20110201

REACTIONS (5)
  - COGNITIVE DISORDER [None]
  - ASTHENIA [None]
  - AMNESIA [None]
  - OROPHARYNGEAL PAIN [None]
  - URINARY TRACT INFECTION [None]
